FAERS Safety Report 15720552 (Version 2)
Quarter: 2018Q4

REPORT INFORMATION
  Report Type: Spontaneous
  Country: US (occurrence: US)
  Receive Date: 20181213
  Receipt Date: 20181227
  Transmission Date: 20190205
  Serious: Yes (Hospitalization)
  Sender: FDA-Public Use
  Company Number: US-VIFOR (INTERNATIONAL) INC.-VIT-2018-12141

PATIENT
  Sex: Male

DRUGS (16)
  1. ASPIRIN. [Concomitant]
     Active Substance: ASPIRIN
  2. FUROSEMIDE. [Concomitant]
     Active Substance: FUROSEMIDE
  3. LEVOTHYROXINE SODIUM. [Concomitant]
     Active Substance: LEVOTHYROXINE SODIUM
  4. ALLOPURINOL. [Concomitant]
     Active Substance: ALLOPURINOL
  5. LANTUS [Concomitant]
     Active Substance: INSULIN GLARGINE
  6. MINOXIDIL. [Concomitant]
     Active Substance: MINOXIDIL
  7. NOVOLOG [Concomitant]
     Active Substance: INSULIN ASPART
  8. AMLODIPINE BESYLATE. [Concomitant]
     Active Substance: AMLODIPINE BESYLATE
  9. CARDURA [Concomitant]
     Active Substance: DOXAZOSIN MESYLATE
  10. FERROUS SULFATE. [Concomitant]
     Active Substance: FERROUS SULFATE
  11. CALCIUM 600 [Concomitant]
     Active Substance: CALCIUM
  12. BYSTOLIC [Concomitant]
     Active Substance: NEBIVOLOL HYDROCHLORIDE
  13. GLIMEPIRIDE. [Concomitant]
     Active Substance: GLIMEPIRIDE
  14. LIPITOR [Concomitant]
     Active Substance: ATORVASTATIN CALCIUM
  15. VELTASSA [Suspect]
     Active Substance: PATIROMER
     Indication: HYPERKALAEMIA
     Route: 048
     Dates: start: 20180620, end: 2018
  16. RANITIDINE HCL [Concomitant]
     Active Substance: RANITIDINE HYDROCHLORIDE

REACTIONS (2)
  - Dialysis [Unknown]
  - Myocardial infarction [Unknown]

NARRATIVE: CASE EVENT DATE: 2018
